FAERS Safety Report 8202333-X (Version None)
Quarter: 2012Q1

REPORT INFORMATION
  Report Type: 
  Country: None (occurrence: None)
  Receive Date: 20120312
  Receipt Date: 20110428
  Transmission Date: 20120608
  Serious: No
  Sender: FDA-Public Use
  Company Number: US-ABBOTT-11P-163-0722661-00

PATIENT
  Sex: Male

DRUGS (4)
  1. DEPAKOTE [Suspect]
  2. DEPAKOTE [Suspect]
     Indication: BIPOLAR DISORDER
     Dates: start: 20020101
  3. DEPAKOTE [Suspect]
     Dates: start: 20110401
  4. LITHIUM CARBONATE [Concomitant]
     Indication: BIPOLAR DISORDER
     Dosage: 1200 MG
     Dates: start: 19970101

REACTIONS (3)
  - THINKING ABNORMAL [None]
  - HEADACHE [None]
  - AMNESIA [None]
